FAERS Safety Report 8911636 (Version 1)
Quarter: 2012Q4

REPORT INFORMATION
  Report Type: 
  Country: US (occurrence: US)
  Receive Date: 20121116
  Receipt Date: 20121116
  Transmission Date: 20130627
  Serious: Yes (Hospitalization, Other)
  Sender: FDA-Public Use
  Company Number: US-BAYER-2012-117946

PATIENT
  Age: 30 Year
  Sex: Female

DRUGS (12)
  1. YAZ [Suspect]
  2. CARDIZEM LA [Concomitant]
     Dosage: 240 mg, UNK
  3. LISINOPRIL W/HYDROCHLOROTHIAZIDE [Concomitant]
     Dosage: 10 mg, UNK
  4. LISINOPRIL W/HYDROCHLOROTHIAZIDE [Concomitant]
     Dosage: 12.5 mg, UNK
  5. HYDROCODONE W/APAP [Concomitant]
     Dosage: 7.5 mg, UNK
  6. HYDROCODONE W/APAP [Concomitant]
     Dosage: 500 mg, UNK
  7. CEPHALEXIN [Concomitant]
     Dosage: 500 mg, UNK
  8. CYCLOBENZAPRINE [Concomitant]
     Dosage: 10 mg, UNK
  9. IBUPROFEN [Concomitant]
     Dosage: 800 mg, UNK
  10. PENICILLIN VK [Concomitant]
     Dosage: 500 mg, UNK
  11. METHYLPREDNISOLONE [Concomitant]
     Dosage: 4 mg, dosepak
  12. AVELOX [Concomitant]
     Dosage: 400 mg, UNK

REACTIONS (4)
  - Deep vein thrombosis [None]
  - Pulmonary embolism [None]
  - Pelvic venous thrombosis [None]
  - Deep vein thrombosis [None]
